FAERS Safety Report 5944105-2 (Version None)
Quarter: 2008Q4

REPORT INFORMATION
  Report Type: 
  Country: None (occurrence: None)
  Receive Date: 20081021
  Receipt Date: 20080321
  Transmission Date: 20090506
  Serious: Yes (Other)
  Sender: FDA-Public Use
  Company Number: US-WYE-H03298508

PATIENT
  Age: 82 Year
  Sex: Female
  Weight: 63.56 kg

DRUGS (4)
  1. PREMARIN [Suspect]
     Indication: OESTROGEN THERAPY
     Dosage: 0.625 MG 1X PER 1 DAY, ORAL
     Route: 048
     Dates: start: 20060101
  2. LISINOPRIL [Concomitant]
  3. NORVASC (AMLDOPINE BESILATE) [Concomitant]
  4. SYNTHROID (LEVOTHYROID SODIUM) [Concomitant]

REACTIONS (4)
  - ASTHENIA [None]
  - BLOOD PRESSURE INCREASED [None]
  - DEPRESSED MOOD [None]
  - URINE OUTPUT DECREASED [None]
